FAERS Safety Report 4389374-8 (Version None)
Quarter: 2004Q2

REPORT INFORMATION
  Report Type: 
  Country: None (occurrence: None)
  Receive Date: 20040630
  Receipt Date: 20040617
  Transmission Date: 20050107
  Serious: Yes (Hospitalization)
  Sender: FDA-Public Use
  Company Number: 2004220060FR

PATIENT
  Age: 4 Month
  Sex: Male
  Weight: 5.6 kg

DRUGS (9)
  1. SOLU-MEDROL [Suspect]
     Dosage: 10 MG, QD, IV
     Route: 042
     Dates: start: 20040507, end: 20040512
  2. BACTRIM [Suspect]
     Dosage: 240 MG, BID, IV
     Route: 042
     Dates: start: 20040507, end: 20040510
  3. RANITIDINE [Suspect]
     Dosage: 50 MG, QD, IV
     Route: 042
     Dates: start: 20040506, end: 20040509
  4. VANCOCIN HCL [Suspect]
     Dosage: 230 MG, QD, IV
     Route: 042
     Dates: start: 20040505, end: 20040508
  5. IMMUNE GLOBULIN (HUMAN) [Suspect]
     Dosage: 3 G, QD, IV
     Route: 042
     Dates: start: 20040507, end: 20040509
  6. ROCEPHIN [Suspect]
     Dosage: 500 MG, QD, IV
     Route: 042
     Dates: start: 20040505, end: 20040512
  7. ACETAMINOPHEN [Concomitant]
  8. MIDAZOLAM HCL [Concomitant]
  9. AMIKACIN [Concomitant]

REACTIONS (10)
  - AGITATION [None]
  - AGRANULOCYTOSIS [None]
  - CRYING [None]
  - IMMUNE SYSTEM DISORDER [None]
  - MOANING [None]
  - OXYGEN SATURATION DECREASED [None]
  - PNEUMOCYSTIS CARINII PNEUMONIA [None]
  - PNEUMOTHORAX [None]
  - RESPIRATORY DISTRESS [None]
  - TACHYPNOEA [None]
